FAERS Safety Report 8095419-4 (Version None)
Quarter: 2011Q4

REPORT INFORMATION
  Report Type: 
  Country: None (occurrence: None)
  Receive Date: 20111222
  Receipt Date: 20110930
  Transmission Date: 20120403
  Serious: Yes (Hospitalization)
  Sender: FDA-Public Use
  Company Number: UTC-010703

PATIENT
  Age: 48 Year
  Sex: Male

DRUGS (2)
  1. LETAIRIS [Concomitant]
  2. TYVASO [Suspect]
     Indication: PULMONARY ARTERIAL HYPERTENSION
     Dosage: 216 MCG (54 MCG, 4 IN 1 D) INHALATION
     Route: 055
     Dates: start: 20110525

REACTIONS (3)
  - FLUID RETENTION [None]
  - DIZZINESS [None]
  - CONFUSIONAL STATE [None]
